FAERS Safety Report 12169254 (Version 2)
Quarter: 2017Q1

REPORT INFORMATION
  Report Type: Spontaneous
  Country: IT (occurrence: IT)
  Receive Date: 20160310
  Receipt Date: 20170223
  Transmission Date: 20170428
  Serious: Yes (Death, Hospitalization, Other)
  Sender: FDA-Public Use
  Company Number: IT-JNJFOC-20160300674

PATIENT
  Age: 77 Year
  Sex: Female

DRUGS (3)
  1. DOXORUBICIN HYDROCHLORIDE. [Suspect]
     Active Substance: DOXORUBICIN HYDROCHLORIDE
     Indication: ANGIOSARCOMA
     Route: 042
  2. ACYCLOVIR. [Concomitant]
     Active Substance: ACYCLOVIR
     Indication: OPHTHALMIC HERPES SIMPLEX
     Route: 065
  3. DOXORUBICIN HYDROCHLORIDE. [Suspect]
     Active Substance: DOXORUBICIN HYDROCHLORIDE
     Indication: ANGIOSARCOMA
     Route: 042

REACTIONS (4)
  - Product use issue [Unknown]
  - Diarrhoea [Unknown]
  - Pulmonary fibrosis [Fatal]
  - Off label use [Unknown]
